FAERS Safety Report 4621057-9 (Version None)
Quarter: 2005Q1

REPORT INFORMATION
  Report Type: 
  Country: None (occurrence: None)
  Receive Date: 20050328
  Receipt Date: 20041006
  Transmission Date: 20050727
  Serious: Yes (Death, Life-Threatening, Disabling)
  Sender: FDA-Public Use
  Company Number: US-MERCK-0410USA00900

PATIENT
  Age: 72 Year
  Sex: Male
  Weight: 88 kg

DRUGS (22)
  1. VIOXX [Suspect]
     Indication: MONARTHRITIS
     Route: 048
     Dates: start: 20020607, end: 20040529
  2. PRAVACHOL [Concomitant]
     Route: 065
     Dates: start: 20040101
  3. LOPRESSOR [Concomitant]
     Route: 065
  4. ASPIRIN [Concomitant]
     Route: 065
  5. VITAMIN E [Concomitant]
     Route: 065
  6. LOTENSIN [Concomitant]
     Indication: HYPERTENSION
     Route: 065
  7. DIUREX (HYDROCHLOROTHIAZIDE) [Concomitant]
     Indication: HYPERTENSION
     Route: 065
  8. PROLEX PD [Concomitant]
     Route: 065
     Dates: start: 20021201
  9. PROLEX PD [Concomitant]
     Route: 065
     Dates: start: 20040311
  10. ROBITUSSIN [Concomitant]
     Route: 065
  11. MEDENT DM [Concomitant]
     Indication: COUGH
     Route: 065
  12. BIAXIN XL [Concomitant]
     Route: 065
  13. NOREL DM [Concomitant]
     Indication: COUGH
     Route: 065
  14. BIDEX [Concomitant]
     Indication: COUGH
     Route: 065
  15. TESSALON [Concomitant]
     Indication: COUGH
     Route: 065
     Dates: start: 20040101
  16. TESSALON [Concomitant]
     Route: 065
     Dates: start: 20040311
  17. CLARITIN [Concomitant]
     Route: 065
  18. TAVIST [Concomitant]
     Route: 065
  19. MEDENT LD [Concomitant]
     Indication: COUGH
     Route: 065
     Dates: start: 20030811
  20. MEDENT LD [Concomitant]
     Indication: SINUS CONGESTION
     Route: 065
     Dates: start: 20030811
  21. DOXYCLIN [Concomitant]
     Route: 065
     Dates: start: 20040109
  22. DOXYCLIN [Concomitant]
     Route: 065
     Dates: start: 20030101

REACTIONS (9)
  - BRONCHITIS [None]
  - COUGH [None]
  - HYPERKERATOSIS [None]
  - MYOCARDIAL INFARCTION [None]
  - PHARYNGOLARYNGEAL PAIN [None]
  - PULMONARY CONGESTION [None]
  - SINUS BRADYCARDIA [None]
  - SINUS CONGESTION [None]
  - SUDDEN DEATH [None]
